FAERS Safety Report 13201235 (Version 1)
Quarter: 2017Q1

REPORT INFORMATION
  Report Type: Spontaneous
  Country: CA (occurrence: CA)
  Receive Date: 20170209
  Receipt Date: 20170209
  Transmission Date: 20170428
  Serious: Yes (Other)
  Sender: FDA-Public Use
  Company Number: CA-TEVA-738143ACC

PATIENT
  Age: 60 Year
  Sex: Female

DRUGS (11)
  1. METHOTREXATE. [Suspect]
     Active Substance: METHOTREXATE
     Indication: RHEUMATOID ARTHRITIS
     Dosage: 2.8571 MILLIGRAM DAILY;
     Route: 058
  2. NEOVISC [Concomitant]
  3. AMLODIPINE [Concomitant]
     Active Substance: AMLODIPINE BESYLATE
  4. ADVIL [Concomitant]
     Active Substance: IBUPROFEN
  5. PROMETRIUM [Concomitant]
     Active Substance: PROGESTERONE
  6. PREDNISONE. [Concomitant]
     Active Substance: PREDNISONE
  7. ESTRACE [Concomitant]
     Active Substance: ESTRADIOL
  8. TYLENOL [Concomitant]
     Active Substance: ACETAMINOPHEN
  9. VITAMIN D [Concomitant]
     Active Substance: CHOLECALCIFEROL
  10. XELJANZ [Concomitant]
     Active Substance: TOFACITINIB CITRATE
  11. NEXIUM [Concomitant]
     Active Substance: ESOMEPRAZOLE MAGNESIUM

REACTIONS (3)
  - Skin odour abnormal [Recovered/Resolved]
  - Self esteem decreased [Recovered/Resolved]
  - Social problem [Recovered/Resolved]
